FAERS Safety Report 18972621 (Version 1)
Quarter: 2021Q1

REPORT INFORMATION
  Report Type: Spontaneous
  Country: US (occurrence: US)
  Receive Date: 20210304
  Receipt Date: 20210304
  Transmission Date: 20210420
  Serious: Yes (Other)
  Sender: FDA-Public Use
  Company Number: None

PATIENT
  Age: 45 Year
  Sex: Female

DRUGS (13)
  1. KENALOG [Suspect]
     Active Substance: TRIAMCINOLONE ACETONIDE
     Indication: FACET JOINT BLOCK
     Route: 008
     Dates: start: 20210301, end: 20210301
  2. DEPAKOTE ER [Concomitant]
     Active Substance: DIVALPROEX SODIUM
  3. BACLOFEN. [Concomitant]
     Active Substance: BACLOFEN
  4. MONTELUKAST [Concomitant]
     Active Substance: MONTELUKAST SODIUM
  5. CO B VITAMIN?COUNTRY LIFE [Concomitant]
  6. VALIUM [Concomitant]
     Active Substance: DIAZEPAM
  7. VERAPAMIL [Concomitant]
     Active Substance: VERAPAMIL HYDROCHLORIDE
  8. NORCO [Concomitant]
     Active Substance: ACETAMINOPHEN\HYDROCODONE BITARTRATE
  9. RAYVOW [Concomitant]
  10. FIORICET [Concomitant]
     Active Substance: ACETAMINOPHEN\BUTALBITAL\CAFFEINE
  11. LAMICTAL [Concomitant]
     Active Substance: LAMOTRIGINE
  12. CLARITIN [Concomitant]
     Active Substance: LORATADINE
  13. ONE A DAY?RAINBOW LIGHT [Concomitant]

REACTIONS (7)
  - Fatigue [None]
  - Psychotic disorder [None]
  - Depression [None]
  - Suicidal ideation [None]
  - Paranoia [None]
  - Insomnia [None]
  - Thinking abnormal [None]

NARRATIVE: CASE EVENT DATE: 20210301
